FAERS Safety Report 19402823 (Version 1)
Quarter: 2021Q2

REPORT INFORMATION
  Report Type: Report from Study
  Country: US (occurrence: US)
  Receive Date: 20210610
  Receipt Date: 20210610
  Transmission Date: 20210717
  Serious: Yes (Other)
  Sender: FDA-Public Use
  Company Number: US-TAKEDA-2021TUS003993

PATIENT
  Sex: Female

DRUGS (15)
  1. FOLIC ACID. [Concomitant]
     Active Substance: FOLIC ACID
     Dosage: UNK
  2. CYANOCOBALAMIN. [Concomitant]
     Active Substance: CYANOCOBALAMIN
     Dosage: UNK
  3. OXYCODONE HYDROCHLORIDE. [Concomitant]
     Active Substance: OXYCODONE HYDROCHLORIDE
     Dosage: UNK
  4. OXYTOCIN. [Concomitant]
     Active Substance: OXYTOCIN
     Dosage: UNK
  5. MISOPROSTOL. [Concomitant]
     Active Substance: MISOPROSTOL
     Dosage: UNK
  6. CALCIUM CARBONATE. [Concomitant]
     Active Substance: CALCIUM CARBONATE
     Dosage: UNK
  7. METHYLERGOMETRINE [Concomitant]
     Active Substance: METHYLERGONOVINE MALEATE
     Dosage: UNK
  8. POLYETHYLENE GLYCOL 3350. [Concomitant]
     Active Substance: POLYETHYLENE GLYCOL 3350
     Dosage: UNK
  9. METHERGINE [Concomitant]
     Active Substance: METHYLERGONOVINE MALEATE
     Dosage: UNK
  10. VEDOLIZUMAB [Suspect]
     Active Substance: VEDOLIZUMAB
     Indication: INFLAMMATORY BOWEL DISEASE
     Dosage: UNK
     Route: 042
     Dates: start: 20180618
  11. ONDANSETRON [Concomitant]
     Active Substance: ONDANSETRON
     Dosage: UNK
  12. FENTANYL. [Concomitant]
     Active Substance: FENTANYL
     Dosage: UNK
  13. DOCUSATE SODIUM. [Concomitant]
     Active Substance: DOCUSATE SODIUM
     Dosage: UNK
  14. SIMETHICONE (DIMETHICONE) [Concomitant]
     Active Substance: DIMETHICONE
     Dosage: UNK
  15. CARBOPROST [Concomitant]
     Active Substance: CARBOPROST
     Dosage: UNK

REACTIONS (7)
  - Dyspepsia [Recovered/Resolved]
  - Rash [Recovered/Resolved]
  - Bursitis [Recovered/Resolved]
  - Constipation [Recovered/Resolved]
  - Back pain [Recovered/Resolved]
  - Lactation disorder [Recovered/Resolved]
  - Gestational diabetes [Recovered/Resolved]

NARRATIVE: CASE EVENT DATE: 20200629
